FAERS Safety Report 6295246-4 (Version None)
Quarter: 2009Q3

REPORT INFORMATION
  Report Type: 
  Country: None (occurrence: None)
  Receive Date: 20090803
  Receipt Date: 20090724
  Transmission Date: 20100115
  Serious: Yes (Death)
  Sender: FDA-Public Use
  Company Number: AU-AVENTIS-200917388GDDC

PATIENT
  Age: 80 Year
  Sex: Female

DRUGS (2)
  1. LANTUS [Suspect]
     Route: 058
     Dates: start: 20090702
  2. AUTOPEN INSULIN INJECTION PEN [Suspect]

REACTIONS (1)
  - DEATH [None]
